FAERS Safety Report 9357406 (Version 2)
Quarter: 2013Q3

REPORT INFORMATION
  Report Type: Spontaneous
  Country: US (occurrence: US)
  Receive Date: 20130620
  Receipt Date: 20130705
  Transmission Date: 20140515
  Serious: Yes (Hospitalization)
  Sender: FDA-Public Use
  Company Number: US-SANOFI-AVENTIS-2013SA061177

PATIENT
  Age: 64 Year
  Sex: Male

DRUGS (4)
  1. LANTUS SOLOSTAR [Suspect]
     Indication: DIABETES MELLITUS
     Dosage: DOSE:40 UNIT(S)
     Route: 058
  2. LANTUS SOLOSTAR [Suspect]
     Indication: DIABETES MELLITUS
     Dosage: DOSE:40 UNIT(S)
     Route: 065
  3. SOLOSTAR [Suspect]
     Indication: DIABETES MELLITUS
  4. SOLOSTAR [Suspect]
     Indication: DIABETES MELLITUS

REACTIONS (2)
  - Intestinal obstruction [Unknown]
  - Blood glucose increased [Unknown]
